FAERS Safety Report 4764394-X (Version None)
Quarter: 2005Q3

REPORT INFORMATION
  Report Type: 
  Country: None (occurrence: None)
  Receive Date: 20050909
  Receipt Date: 20050725
  Transmission Date: 20060218
  Serious: Yes (Hospitalization, Other)
  Sender: FDA-Public Use
  Company Number: US-BRISTOL-MYERS SQUIBB COMPANY-13048871

PATIENT
  Age: 71 Year
  Sex: Female
  Weight: 60 kg

DRUGS (12)
  1. CYTOXAN [Suspect]
     Indication: BREAST CANCER
     Route: 042
     Dates: start: 20050706, end: 20050706
  2. ADRIAMYCIN PFS [Concomitant]
     Route: 042
     Dates: start: 20050706, end: 20050706
  3. ALOXI [Concomitant]
     Indication: PREMEDICATION
     Route: 042
  4. DECADRON [Concomitant]
     Indication: PREMEDICATION
     Route: 042
  5. EMEND [Concomitant]
     Indication: PREMEDICATION
     Route: 048
  6. LISINOPRIL [Concomitant]
  7. SYNTHROID [Concomitant]
  8. DARVOCET [Concomitant]
  9. IMDUR [Concomitant]
  10. COMBIVENT [Concomitant]
  11. FLOVENT [Concomitant]
  12. B-6 [Concomitant]

REACTIONS (2)
  - BLOOD CREATININE INCREASED [None]
  - RENAL FAILURE [None]
